FAERS Safety Report 10881553 (Version 3)
Quarter: 2015Q1

REPORT INFORMATION
  Report Type: Spontaneous
  Country: US (occurrence: US)
  Receive Date: 20150303
  Receipt Date: 20150323
  Transmission Date: 20150721
  Serious: No
  Sender: FDA-Public Use
  Company Number: US-TEVA-545046USA

PATIENT
  Age: 26 Year
  Sex: Female
  Weight: 64.92 kg

DRUGS (2)
  1. FEN-PHEN [Concomitant]
     Indication: WEIGHT DECREASED
  2. PLAN B ONE-STEP [Suspect]
     Active Substance: LEVONORGESTREL
     Indication: POST COITAL CONTRACEPTION
     Dosage: 1.5 MILLIGRAM DAILY;
     Route: 048
     Dates: start: 20150224, end: 20150224

REACTIONS (3)
  - Inappropriate schedule of drug administration [Recovered/Resolved]
  - Menstruation delayed [Recovered/Resolved]
  - Vaginal haemorrhage [Recovered/Resolved]

NARRATIVE: CASE EVENT DATE: 20150224
